FAERS Safety Report 10558072 (Version 1)
Quarter: 2014Q4

REPORT INFORMATION
  Report Type: Spontaneous
  Country: SE (occurrence: SE)
  Receive Date: 20141031
  Receipt Date: 20141031
  Transmission Date: 20150529
  Serious: Yes (Other)
  Sender: FDA-Public Use
  Company Number: SE-BRISTOL-MYERS SQUIBB COMPANY-21519798

PATIENT
  Age: 80 Year
  Sex: Male

DRUGS (13)
  1. MINDIAB [Concomitant]
     Active Substance: GLIPIZIDE
  2. SIMVASTATIN TAB [Concomitant]
     Active Substance: SIMVASTATIN
  3. APROVEL FILM-COATED TABS [Concomitant]
     Active Substance: IRBESARTAN
  4. ALLOPURINOL. [Concomitant]
     Active Substance: ALLOPURINOL
  5. METOPROLOL TARTRATE. [Concomitant]
     Active Substance: METOPROLOL TARTRATE
  6. NASONEX [Concomitant]
     Active Substance: MOMETASONE FUROATE
  7. GLYCERYL TRINITRATE [Concomitant]
     Active Substance: NITROGLYCERIN
  8. NOVOMIX [Concomitant]
     Active Substance: INSULIN ASPART
  9. XALATAN [Concomitant]
     Active Substance: LATANOPROST
  10. FELODIPINE. [Concomitant]
     Active Substance: FELODIPINE
  11. ELIQUIS [Suspect]
     Active Substance: APIXABAN
     Indication: CEREBROVASCULAR ACCIDENT PROPHYLAXIS
     Dosage: FILMDRAGERAD TABLET
     Route: 048
     Dates: start: 20140820, end: 20140916
  12. FURIX [Concomitant]
     Active Substance: FUROSEMIDE
  13. ALVEDON [Concomitant]
     Active Substance: ACETAMINOPHEN

REACTIONS (4)
  - Fatigue [Recovered/Resolved]
  - Nausea [Recovered/Resolved]
  - Dyspnoea [Recovered/Resolved]
  - Palpitations [Recovered/Resolved]

NARRATIVE: CASE EVENT DATE: 20140916
